FAERS Safety Report 5882577-2 (Version None)
Quarter: 2008Q3

REPORT INFORMATION
  Report Type: 
  Country: None (occurrence: None)
  Receive Date: 20080913
  Receipt Date: 20080808
  Transmission Date: 20090109
  Serious: No
  Sender: FDA-Public Use
  Company Number: US-ABBOTT-08P-163-0469853-00

PATIENT
  Sex: Female
  Weight: 72.64 kg

DRUGS (5)
  1. HUMIRA [Suspect]
     Indication: PSORIASIS
     Route: 058
     Dates: start: 20080619, end: 20080619
  2. HUMIRA [Suspect]
     Route: 058
     Dates: start: 20080626, end: 20080626
  3. HUMIRA [Suspect]
     Route: 058
     Dates: start: 20080703
  4. METHOTREXATE [Concomitant]
     Indication: PSORIASIS
     Dosage: 8 (2.5MG) TABS
     Route: 048
     Dates: start: 20080501
  5. DEVONEX TOPICAL STEROID OINTMENT [Concomitant]
     Indication: PRURITUS
     Route: 061
     Dates: start: 19950101

REACTIONS (2)
  - AMENORRHOEA [None]
  - METRORRHAGIA [None]
